FAERS Safety Report 8251857-8 (Version None)
Quarter: 2012Q2

REPORT INFORMATION
  Report Type: 
  Country: None (occurrence: None)
  Receive Date: 20120402
  Receipt Date: 20120328
  Transmission Date: 20120825
  Serious: Yes (Hospitalization, Other)
  Sender: FDA-Public Use
  Company Number: FR-PFIZER INC-2012078823

PATIENT
  Age: 10 Year
  Sex: Male

DRUGS (1)
  1. IBUPROFEN (ADVIL) [Suspect]
     Dosage: UNK
     Route: 048

REACTIONS (5)
  - NAUSEA [None]
  - EYELID OEDEMA [None]
  - FACE OEDEMA [None]
  - HYPERSENSITIVITY [None]
  - PRURITUS [None]
